FAERS Safety Report 4613692-9 (Version None)
Quarter: 2005Q1

REPORT INFORMATION
  Report Type: 
  Country: None (occurrence: None)
  Receive Date: 20050318
  Receipt Date: 20050318
  Transmission Date: 20050727
  Serious: Yes (Hospitalization)
  Sender: FDA-Public Use
  Company Number: None

PATIENT
  Sex: Female
  Weight: 58.9676 kg

DRUGS (3)
  1. DIGOXIN [Suspect]
     Indication: ATRIAL FIBRILLATION
     Dosage: 0.125 MG PO QD   PRIOR TO ADMISSION
     Route: 048
  2. LASIX [Concomitant]
  3. SPIRONOLACTONE [Concomitant]

REACTIONS (8)
  - DEHYDRATION [None]
  - DIARRHOEA [None]
  - FLUID INTAKE REDUCED [None]
  - NAUSEA [None]
  - ORAL INTAKE REDUCED [None]
  - THERAPEUTIC AGENT TOXICITY [None]
  - UROSEPSIS [None]
  - VOMITING [None]
